FAERS Safety Report 9123764 (Version 1)
Quarter: 2013Q1

REPORT INFORMATION
  Report Type: Spontaneous
  Country: AU (occurrence: AU)
  Receive Date: 20130115
  Receipt Date: 20130115
  Transmission Date: 20140127
  Serious: Yes (Other)
  Sender: FDA-Public Use
  Company Number: AU-PFIZER INC-2013013185

PATIENT
  Sex: Female

DRUGS (1)
  1. PRISTIQ [Suspect]
     Dosage: 50 MG, UNK

REACTIONS (9)
  - Weight decreased [Unknown]
  - Aphagia [Unknown]
  - Memory impairment [Unknown]
  - Confusional state [Unknown]
  - Withdrawal syndrome [Unknown]
  - Local swelling [Unknown]
  - Eye swelling [Unknown]
  - Weight increased [Unknown]
  - Dizziness [Recovered/Resolved]
